FAERS Safety Report 4759243-X (Version None)
Quarter: 2005Q3

REPORT INFORMATION
  Report Type: 
  Country: None (occurrence: None)
  Receive Date: 20050831
  Receipt Date: 20050811
  Transmission Date: 20060218
  Serious: Yes (Other)
  Sender: FDA-Public Use
  Company Number: CA_050708408

PATIENT
  Age: 52 Year
  Sex: Female

DRUGS (5)
  1. STRATTERA [Suspect]
     Indication: DISTURBANCE IN ATTENTION
     Dosage: 40 MG/ 1 DAY
     Dates: start: 20050315, end: 20050518
  2. EFFEXOR XR [Concomitant]
  3. LITHIUM CARBONATE [Concomitant]
  4. DALMANE [Concomitant]
  5. DITROPAN /00538901/ (OXYBUTYNIN) [Concomitant]

REACTIONS (1)
  - ILEUS PARALYTIC [None]
